FAERS Safety Report 10215555 (Version 1)
Quarter: 2014Q2

REPORT INFORMATION
  Report Type: Spontaneous
  Country: JP (occurrence: JP)
  Receive Date: 20140604
  Receipt Date: 20140604
  Transmission Date: 20141212
  Serious: Yes (Hospitalization, Other)
  Sender: FDA-Public Use
  Company Number: JP-ACCORD-024007

PATIENT
  Age: 29 Year
  Sex: Male

DRUGS (9)
  1. TACROLIMUS [Suspect]
     Indication: RENAL TRANSPLANT
     Dates: start: 20110808
  2. ETHAMBUTOL [Suspect]
     Indication: TUBERCULOSIS
     Dates: start: 20120609, end: 2013
  3. RIFAMPICIN [Suspect]
     Indication: TUBERCULOSIS
     Dates: start: 20120609, end: 2013
  4. MYCOPHENOLIC ACID [Suspect]
     Indication: RENAL TRANSPLANT
     Dosage: PREVIOUSLY TOOK 1500 MG AND THEN DOSE REDUCED.
     Dates: start: 20110808
  5. OLMESARTAN/OLMESARTAM MEDOXIMIL [Concomitant]
     Dates: start: 2012, end: 20130408
  6. METHYLPREDNISOLONE [Suspect]
     Indication: RENAL TRANSPLANT
     Dosage: ADD 3 DAYS PULSE THERAPY WITH 500 MG/DAY TWICE WEEKELY
     Dates: start: 20110808
  7. ISONIAZID/ISONIAZID CALCIUM PYRUVINATE/ISONIAZID SODIUM GLUCURONATE [Suspect]
     Indication: TUBERCULOSIS
     Dates: start: 20120609, end: 2013
  8. BASILIXIMAB [Suspect]
     Indication: RENAL TRANSPLANT
     Dates: start: 20110808
  9. PYRAZINAMIDE [Suspect]
     Indication: TUBERCULOSIS
     Dates: start: 20120609, end: 2013

REACTIONS (4)
  - Drug level decreased [Unknown]
  - Transplant rejection [Recovered/Resolved]
  - Arteritis [None]
  - Immunosuppressant drug level decreased [None]
